FAERS Safety Report 7026908-9 (Version None)
Quarter: 2010Q4

REPORT INFORMATION
  Report Type: 
  Country: None (occurrence: None)
  Receive Date: 20101004
  Receipt Date: 20100928
  Transmission Date: 20110411
  Serious: Yes (Hospitalization)
  Sender: FDA-Public Use
  Company Number: A0884279A

PATIENT
  Age: 15 Year
  Sex: Female
  Weight: 62.7 kg

DRUGS (5)
  1. LAMICTAL [Suspect]
     Route: 048
     Dates: start: 20050501
  2. LAMICTAL [Suspect]
     Route: 048
     Dates: start: 20050501
  3. ABILIFY [Concomitant]
  4. TRAZODONE HCL [Concomitant]
  5. RETIN-A [Concomitant]

REACTIONS (6)
  - BACTERIAL INFECTION [None]
  - CONJUNCTIVITIS [None]
  - PYREXIA [None]
  - SKIN LESION [None]
  - STEVENS-JOHNSON SYNDROME [None]
  - VULVOVAGINAL BURNING SENSATION [None]
